FAERS Safety Report 7934057 (Version 4)
Quarter: 2014Q2

REPORT INFORMATION
  Report Type: Spontaneous
  Country: US (occurrence: US)
  Receive Date: 20110506
  Receipt Date: 20140617
  Transmission Date: 20141212
  Serious: Yes (Other)
  Sender: FDA-Public Use
  Company Number: US-US-EMD SERONO, INC.-230524K08USA

PATIENT
  Sex: Male
  Weight: 77 kg

DRUGS (3)
  1. REBIF [Suspect]
     Indication: MULTIPLE SCLEROSIS
     Route: 058
     Dates: start: 20020602
  2. FLUOXETINE [Concomitant]
     Indication: MULTIPLE SCLEROSIS
     Route: 048
     Dates: start: 1995
  3. BACLOFEN [Concomitant]
     Indication: MULTIPLE SCLEROSIS
     Route: 048
     Dates: start: 1995

REACTIONS (8)
  - Renal cancer [Unknown]
  - Adrenal gland cancer [Unknown]
  - Thyroid cancer [Unknown]
  - Metastases to spleen [Unknown]
  - Metastases to adrenals [Unknown]
  - Metastases to pancreas [Unknown]
  - Bone cancer [Unknown]
  - Multiple sclerosis relapse [Recovered/Resolved]
